FAERS Safety Report 11567193 (Version 3)
Quarter: 2016Q3

REPORT INFORMATION
  Report Type: Report from Study
  Country: US (occurrence: US)
  Receive Date: 20150929
  Receipt Date: 20160907
  Transmission Date: 20161109
  Serious: Yes (Other)
  Sender: FDA-Public Use
  Company Number: US-ROCHE-ITM201502IM010751

PATIENT
  Sex: Female
  Weight: 75.36 kg

DRUGS (8)
  1. ESBRIET [Suspect]
     Active Substance: PIRFENIDONE
     Indication: IDIOPATHIC PULMONARY FIBROSIS
     Route: 048
     Dates: start: 201501, end: 201506
  2. RANITIDINE. [Concomitant]
     Active Substance: RANITIDINE
     Dosage: TAKES 1 TABLET 2 TIMES DAILY
     Route: 048
  3. ESBRIET [Interacting]
     Active Substance: PIRFENIDONE
     Dosage: TOOK 3 CAPSULES 3 TIMES DAILY
     Route: 048
     Dates: start: 201412, end: 201503
  4. NITROSTAT [Concomitant]
     Active Substance: NITROGLYCERIN
     Route: 060
  5. TRAMADOL. [Concomitant]
     Active Substance: TRAMADOL
     Indication: PAIN
     Dosage: TAKES 1 TABLET AS NEEDED
     Route: 048
  6. FLUTICASONE [Concomitant]
     Active Substance: FLUTICASONE\FLUTICASONE PROPIONATE
     Dosage: AS REQUIRED IN MG
     Route: 045
  7. ISOSORBID MONONITRATE [Concomitant]
     Active Substance: ISOSORBIDE MONONITRATE
     Dosage: TAKES 1 TABLETS 1 TIME DAILY
     Route: 048
  8. METOPROLOL. [Concomitant]
     Active Substance: METOPROLOL
     Dosage: TAKES 2 TABLETS DAILY
     Route: 048

REACTIONS (5)
  - Nephrolithiasis [Recovered/Resolved with Sequelae]
  - Haematuria [Unknown]
  - Drug interaction [Unknown]
  - Kidney infection [Unknown]
  - Back pain [Unknown]
